FAERS Safety Report 8199043-4 (Version None)
Quarter: 2012Q1

REPORT INFORMATION
  Report Type: 
  Country: None (occurrence: None)
  Receive Date: 20120309
  Receipt Date: 20120307
  Transmission Date: 20120608
  Serious: Yes (Hospitalization)
  Sender: FDA-Public Use
  Company Number: US-GLAXOSMITHKLINE-A0969193A

PATIENT
  Age: 57 Year
  Sex: Female
  Weight: 76.4 kg

DRUGS (3)
  1. RADIATION [Suspect]
     Indication: THYROID CANCER
  2. PACLITAXEL [Suspect]
     Indication: THYROID CANCER
     Route: 042
     Dates: start: 20110601, end: 20120104
  3. VOTRIENT [Suspect]
     Indication: THYROID CANCER
     Route: 048
     Dates: start: 20110601

REACTIONS (9)
  - LARYNGEAL OEDEMA [None]
  - EPIGLOTTIC ERYTHEMA [None]
  - HYPOCALCAEMIA [None]
  - HYPERTENSION [None]
  - DYSPNOEA [None]
  - VOCAL CORD PARALYSIS [None]
  - GASTROOESOPHAGEAL REFLUX DISEASE [None]
  - OSTEOARTHRITIS [None]
  - OROPHARYNGEAL PAIN [None]
